FAERS Safety Report 6370062-3 (Version None)
Quarter: 2009Q3

REPORT INFORMATION
  Report Type: 
  Country: None (occurrence: None)
  Receive Date: 20090923
  Receipt Date: 20070918
  Transmission Date: 20100115
  Serious: Yes (Hospitalization)
  Sender: FDA-Public Use
  Company Number: US-ASTRAZENECA-2006UW22221

PATIENT
  Age: 5439 Day
  Sex: Male
  Weight: 108.9 kg

DRUGS (22)
  1. SEROQUEL [Suspect]
     Indication: BIPOLAR DISORDER
     Route: 048
     Dates: start: 19980101, end: 20030101
  2. SEROQUEL [Suspect]
     Indication: SCHIZOPHRENIA
     Route: 048
     Dates: start: 19980101, end: 20030101
  3. SEROQUEL [Suspect]
     Dosage: 100-900MG
     Route: 048
     Dates: start: 20000731
  4. SEROQUEL [Suspect]
     Dosage: 100-900MG
     Route: 048
     Dates: start: 20000731
  5. ABILIFY [Concomitant]
     Dates: start: 19960101
  6. GEODON [Concomitant]
  7. HALDOL [Concomitant]
     Dates: start: 20030101
  8. RISPERDAL [Concomitant]
     Dates: start: 19980101
  9. ZYPREXA [Concomitant]
     Dates: start: 19970101
  10. TOPAMAX [Concomitant]
  11. TRILEPTAL [Concomitant]
  12. FENEX [Concomitant]
  13. RITALIN [Concomitant]
  14. ALBUTEROL [Concomitant]
  15. GLYBURIDE [Concomitant]
  16. HUMULIN R [Concomitant]
  17. GUANFACINE HYDROCHLORIDE [Concomitant]
  18. LITHOBID [Concomitant]
  19. DDAVP [Concomitant]
  20. COGENTIN [Concomitant]
  21. MELLARIL [Concomitant]
  22. GLUCOPHAGE [Concomitant]

REACTIONS (3)
  - DIABETES MELLITUS [None]
  - DIABETIC KETOACIDOSIS [None]
  - TYPE 2 DIABETES MELLITUS [None]
